FAERS Safety Report 20843252 (Version 2)
Quarter: 2022Q2

REPORT INFORMATION
  Report Type: Spontaneous
  Country: AU (occurrence: AU)
  Receive Date: 20220518
  Receipt Date: 20220623
  Transmission Date: 20220721
  Serious: Yes (Other)
  Sender: FDA-Public Use
  Company Number: AU-MYLANLABS-2022M1036399

PATIENT
  Age: 23 Year
  Sex: Male

DRUGS (9)
  1. DEXAMETHASONE [Suspect]
     Active Substance: DEXAMETHASONE
     Indication: Vernal keratoconjunctivitis
     Dosage: UNK
     Route: 047
  2. TRALOKINUMAB [Suspect]
     Active Substance: TRALOKINUMAB
     Indication: Dermatitis atopic
     Dosage: UNK
     Route: 065
  3. TACROLIMUS [Concomitant]
     Active Substance: TACROLIMUS
     Indication: Vernal keratoconjunctivitis
     Dosage: EYELIDS
  4. CHLORAMPHENICOL [Concomitant]
     Active Substance: CHLORAMPHENICOL
     Indication: Vernal keratoconjunctivitis
     Dosage: IN BOTH EYES
     Route: 047
  5. HYDROCORTISONE [Concomitant]
     Active Substance: HYDROCORTISONE
     Indication: Vernal keratoconjunctivitis
     Dosage: IN BOTH EYES
     Route: 047
  6. PREDNISONE [Concomitant]
     Active Substance: PREDNISONE
     Indication: Vernal keratoconjunctivitis
     Dosage: SHORT COURSE
     Route: 048
  7. PREDNISONE [Concomitant]
     Active Substance: PREDNISONE
     Dosage: 15 MILLIGRAM, QD
     Route: 048
  8. PREDNISONE [Concomitant]
     Active Substance: PREDNISONE
     Dosage: UNK, RESTARTED
     Route: 048
  9. ISOTRETINOIN [Concomitant]
     Active Substance: ISOTRETINOIN
     Indication: Acne
     Dosage: LOW DOSE
     Route: 065

REACTIONS (2)
  - Vernal keratoconjunctivitis [Recovering/Resolving]
  - Rebound effect [Recovering/Resolving]
